FAERS Safety Report 9749243 (Version 1)
Quarter: 2013Q4

REPORT INFORMATION
  Report Type: Spontaneous
  Country: US (occurrence: US)
  Receive Date: 20131212
  Receipt Date: 20131212
  Transmission Date: 20140711
  Serious: No
  Sender: FDA-Public Use
  Company Number: US-INCYTE CORPORATION-2013IN002569

PATIENT
  Age: 75 Year
  Sex: Female

DRUGS (2)
  1. JAKAFI [Suspect]
     Dosage: 20 MG Q AM, 10 MG Q PM
     Route: 048
  2. JAKAFI [Suspect]
     Dosage: 15 MG Q AM, 10 MG Q PM
     Route: 048

REACTIONS (3)
  - Fall [Unknown]
  - Dizziness [Unknown]
  - Blood count abnormal [Unknown]
